FAERS Safety Report 10448499 (Version 2)
Quarter: 2014Q3

REPORT INFORMATION
  Report Type: Report from Study
  Country: US (occurrence: US)
  Receive Date: 20140911
  Receipt Date: 20140911
  Transmission Date: 20150326
  Serious: Yes (Other)
  Sender: FDA-Public Use
  Company Number: PHEH2014US015568

PATIENT
  Sex: Female

DRUGS (1)
  1. RECLAST [Suspect]
     Active Substance: ZOLEDRONIC ACID
     Dosage: UNK
     Route: 042

REACTIONS (5)
  - Nervous system disorder [Unknown]
  - Spinal disorder [Unknown]
  - Movement disorder [Unknown]
  - Osteoporosis [Unknown]
  - Breast cancer [Unknown]
